FAERS Safety Report 10450622 (Version 3)
Quarter: 2014Q3

REPORT INFORMATION
  Report Type: Report from Study
  Country: TW (occurrence: TW)
  Receive Date: 20140912
  Receipt Date: 20140925
  Transmission Date: 20150326
  Serious: Yes (Hospitalization, Other)
  Sender: FDA-Public Use
  Company Number: TW-BRISTOL-MYERS SQUIBB COMPANY-21340104

PATIENT
  Age: 56 Year
  Sex: Female

DRUGS (5)
  1. CELEBREX [Concomitant]
     Active Substance: CELECOXIB
  2. ARAVA [Concomitant]
     Active Substance: LEFLUNOMIDE
  3. ORENCIA [Suspect]
     Active Substance: ABATACEPT
     Indication: RHEUMATOID ARTHRITIS
     Dosage: 2 VIAL
     Route: 041
     Dates: start: 20131029
  4. PLAQUENIL [Concomitant]
     Active Substance: HYDROXYCHLOROQUINE SULFATE
  5. PREDNISOLONE. [Concomitant]
     Active Substance: PREDNISOLONE

REACTIONS (5)
  - Pneumoperitoneum [Unknown]
  - Colon cancer [Unknown]
  - Atelectasis [Unknown]
  - Pleural effusion [Unknown]
  - Renal cyst [Unknown]

NARRATIVE: CASE EVENT DATE: 20140731
